FAERS Safety Report 24284839 (Version 1)
Quarter: 2024Q3

REPORT INFORMATION
  Report Type: Spontaneous
  Country: US (occurrence: None)
  Receive Date: 20240904
  Receipt Date: 20240904
  Transmission Date: 20241016
  Serious: Yes (Disabling)
  Sender: Public
  Company Number: None

PATIENT
  Age: 79 Year
  Sex: Female
  Weight: 99.34 kg

DRUGS (11)
  1. LEQVIO [Suspect]
     Active Substance: INCLISIRAN SODIUM
     Indication: Blood cholesterol increased
     Dosage: 1 INJECTION  1, 2ND TO BE IN AUG.+ 3RD 6MOS   INJECTION
  2. UNSPECIFIED INGREDIENT [Concomitant]
     Active Substance: UNSPECIFIED INGREDIENT
  3. METOPROLOL [Concomitant]
     Active Substance: METOPROLOL
  4. VALSARTAN [Concomitant]
     Active Substance: VALSARTAN
  5. PLAVIX [Concomitant]
     Active Substance: CLOPIDOGREL BISULFATE
  6. ELIQUIS [Concomitant]
     Active Substance: APIXABAN
  7. Preservisioni II [Concomitant]
  8. MINERALS\VITAMINS [Concomitant]
     Active Substance: MINERALS\VITAMINS
  9. FIBERCON [Concomitant]
     Active Substance: CALCIUM POLYCARBOPHIL
  10. FISH OIL [Concomitant]
     Active Substance: FISH OIL
  11. Neil nasal rinse w/Budesonide powder [Concomitant]

REACTIONS (5)
  - Neck pain [None]
  - Musculoskeletal stiffness [None]
  - Pain [None]
  - Gait disturbance [None]
  - Disability [None]

NARRATIVE: CASE EVENT DATE: 20240701
